FAERS Safety Report 16746895 (Version 1)
Quarter: 2019Q3

REPORT INFORMATION
  Report Type: Spontaneous
  Country: US (occurrence: US)
  Receive Date: 20190827
  Receipt Date: 20190827
  Transmission Date: 20191005
  Serious: No
  Sender: FDA-Public Use
  Company Number: US-SA-2019SA234533

PATIENT
  Age: 65 Year
  Sex: Female

DRUGS (2)
  1. ALLEGRA D-12 HOUR [Suspect]
     Active Substance: FEXOFENADINE HYDROCHLORIDE\PSEUDOEPHEDRINE HYDROCHLORIDE
     Indication: STAPHYLOCOCCAL SCALDED SKIN SYNDROME
     Dosage: TOOK 1 ALLEGRA D TABLET YESTERDAY BUT THAT THIS MORNING CALLER HAS ALREADY TAKEN 2 ALLEGRA D 12 HOUR
  2. ALLEGRA D-12 HOUR [Suspect]
     Active Substance: FEXOFENADINE HYDROCHLORIDE\PSEUDOEPHEDRINE HYDROCHLORIDE
     Indication: PRURITUS

REACTIONS (2)
  - Product use in unapproved indication [Unknown]
  - Product colour issue [Unknown]
